FAERS Safety Report 20163604 (Version 1)
Quarter: 2021Q4

REPORT INFORMATION
  Report Type: Report from Study
  Country: EG (occurrence: EG)
  Receive Date: 20211209
  Receipt Date: 20211209
  Transmission Date: 20220303
  Serious: Yes (Other)
  Sender: FDA-Public Use
  Company Number: EG-NOVARTISPH-NVSC2021EG276575

PATIENT
  Age: 43 Year
  Sex: Male

DRUGS (3)
  1. GLIVEC [Suspect]
     Active Substance: IMATINIB MESYLATE
     Indication: Chronic myeloid leukaemia
     Dosage: 400 MG, QD (1 TAB/DAY)
     Route: 048
     Dates: start: 201512
  2. CONVENTIN [Concomitant]
     Indication: Analgesic therapy
     Dosage: 1 DOSAGE FORM(FOR ONE MONTH)
     Route: 065
     Dates: start: 201910
  3. VOLTAREN [Concomitant]
     Active Substance: DICLOFENAC SODIUM
     Indication: Analgesic therapy
     Dosage: UNK, QD(ONLY ONE TIME)
     Route: 065
     Dates: start: 201910, end: 201910

REACTIONS (4)
  - Gait disturbance [Not Recovered/Not Resolved]
  - Insomnia [Not Recovered/Not Resolved]
  - Hypoaesthesia [Not Recovered/Not Resolved]
  - Intervertebral disc protrusion [Not Recovered/Not Resolved]

NARRATIVE: CASE EVENT DATE: 20191001
